FAERS Safety Report 9921937 (Version 1)
Quarter: 2014Q1

REPORT INFORMATION
  Report Type: Spontaneous
  Country: US (occurrence: None)
  Receive Date: 20140221
  Receipt Date: 20140221
  Transmission Date: 20141002
  Serious: Yes (Other)
  Sender: FDA-Public Use
  Company Number: None

PATIENT
  Age: 49 Year
  Sex: Female
  Weight: 68.04 kg

DRUGS (2)
  1. BUTRANS [Suspect]
     Indication: PAIN
     Dosage: EVERY 5 DAYS
     Route: 061
  2. BUTRANS [Suspect]
     Indication: PAIN
     Dosage: EVERY 5 DAYS
     Route: 061

REACTIONS (4)
  - Application site pruritus [None]
  - Application site pain [None]
  - Product quality issue [None]
  - Product adhesion issue [None]
